FAERS Safety Report 22290277 (Version 1)
Quarter: 2023Q2

REPORT INFORMATION
  Report Type: Report from Study
  Country: US (occurrence: US)
  Receive Date: 20230505
  Receipt Date: 20230505
  Transmission Date: 20230721
  Serious: Yes (Hospitalization)
  Sender: FDA-Public Use
  Company Number: US-MYLANLABS-2023M1046501

PATIENT
  Sex: Male
  Weight: 103.8 kg

DRUGS (1)
  1. CLOZAPINE [Suspect]
     Active Substance: CLOZAPINE
     Indication: Schizoaffective disorder
     Dosage: 400 MILLIGRAM, QD (ONCE EVERY MORNING)
     Route: 065

REACTIONS (1)
  - Hospitalisation [Unknown]
